FAERS Safety Report 4926629-X (Version None)
Quarter: 2006Q1

REPORT INFORMATION
  Report Type: 
  Country: None (occurrence: None)
  Receive Date: 20060228
  Receipt Date: 20050512
  Transmission Date: 20060701
  Serious: No
  Sender: FDA-Public Use
  Company Number: US-GLAXOSMITHKLINE-A0558378A

PATIENT
  Age: 27 Year
  Sex: Male

DRUGS (2)
  1. LAMICTAL [Suspect]
     Indication: BIPOLAR DISORDER
     Dosage: 75MG PER DAY
     Route: 048
     Dates: start: 20050401
  2. NO CONCURRENT MEDICATION [Concomitant]

REACTIONS (4)
  - ANGER [None]
  - IRRITABILITY [None]
  - PERSONALITY CHANGE [None]
  - RASH [None]
